FAERS Safety Report 6467133-X (Version None)
Quarter: 2009Q4

REPORT INFORMATION
  Report Type: 
  Country: None (occurrence: None)
  Receive Date: 20091202
  Receipt Date: 20091124
  Transmission Date: 20100525
  Serious: Yes (Other)
  Sender: FDA-Public Use
  Company Number: US-BRISTOL-MYERS SQUIBB COMPANY-14865547

PATIENT
  Age: 69 Year
  Sex: Male
  Weight: 119 kg

DRUGS (1)
  1. AVAPRO [Suspect]
     Indication: HYPERTENSION
     Dosage: 1 TAB

REACTIONS (1)
  - ANAPHYLACTIC REACTION [None]
